FAERS Safety Report 5161097-7 (Version None)
Quarter: 2006Q4

REPORT INFORMATION
  Report Type: 
  Country: None (occurrence: None)
  Receive Date: 20061121
  Receipt Date: 20061109
  Transmission Date: 20070319
  Serious: Yes (Hospitalization)
  Sender: FDA-Public Use
  Company Number: RENA-12005

PATIENT
  Age: 56 Year
  Sex: Female

DRUGS (14)
  1. RENAGEL [Suspect]
     Indication: HYPERPHOSPHATAEMIA
     Dosage: 1.5 G QD PO
     Route: 048
     Dates: start: 20061020, end: 20061023
  2. LANSOPRAZOLE [Concomitant]
  3. PRECIPTATED CALCIUM CARBONATE [Concomitant]
  4. HERBAL EXTRACT NOS [Concomitant]
  5. PURSENNID [Concomitant]
  6. LOXOPROFEN [Concomitant]
  7. AMOBAN [Concomitant]
  8. GLYCEROL ENEMA [Concomitant]
  9. NIFLAN [Concomitant]
  10. PIRENOXINE [Concomitant]
  11. EPOETIN BETA [Concomitant]
  12. BLUTAL [Concomitant]
  13. MAXACALCITOL [Concomitant]
  14. FESIN [Concomitant]

REACTIONS (2)
  - DEHYDRATION [None]
  - SUBILEUS [None]
